FAERS Safety Report 9818925 (Version 1)
Quarter: 2014Q1

REPORT INFORMATION
  Report Type: Spontaneous
  Country: FR (occurrence: FR)
  Receive Date: 20140115
  Receipt Date: 20140115
  Transmission Date: 20141002
  Serious: Yes (Hospitalization, Other)
  Sender: FDA-Public Use
  Company Number: FR-PFIZER INC-2014009007

PATIENT
  Age: 83 Year
  Sex: Female

DRUGS (6)
  1. RAMIPRIL [Suspect]
     Dosage: UNK
     Route: 065
     Dates: start: 201308, end: 20131029
  2. TOPLEXIL [Suspect]
     Indication: RESPIRATORY TRACT INFECTION
     Dosage: UNK
     Route: 065
     Dates: start: 20131013, end: 20131029
  3. JOSACINE [Suspect]
     Indication: RESPIRATORY TRACT INFECTION
     Dosage: UNK
     Route: 065
     Dates: start: 20131013, end: 20131029
  4. HELICIDINE [Suspect]
     Indication: RESPIRATORY TRACT INFECTION
     Dosage: UNK
     Route: 065
     Dates: start: 20131013, end: 20131029
  5. FLECAINE [Concomitant]
     Dosage: UNK
  6. MEDIATENSYL [Concomitant]
     Dosage: UNK
     Dates: start: 201308

REACTIONS (7)
  - Angioedema [Recovered/Resolved]
  - Respiratory disorder [Recovered/Resolved]
  - Macroglossia [Recovered/Resolved]
  - Localised oedema [Recovered/Resolved]
  - Speech disorder [Recovered/Resolved]
  - Respiratory tract infection [Unknown]
  - Epistaxis [Recovered/Resolved]
